FAERS Safety Report 19905230 (Version 1)
Quarter: 2021Q3

REPORT INFORMATION
  Report Type: Spontaneous
  Country: CA (occurrence: CA)
  Receive Date: 20210930
  Receipt Date: 20210930
  Transmission Date: 20211014
  Serious: Yes (Other)
  Sender: FDA-Public Use
  Company Number: CA-TEVA-2021-CA-1959090

PATIENT
  Age: 61 Year
  Sex: Female

DRUGS (2)
  1. LEVOFLOXACIN. [Suspect]
     Active Substance: LEVOFLOXACIN
     Indication: SINUSITIS
     Dosage: 1 DOSAGE FORMS DAILY;
     Route: 048
  2. AVAMYS [Concomitant]
     Active Substance: FLUTICASONE FUROATE

REACTIONS (1)
  - Hypertensive urgency [Recovered/Resolved]
